FAERS Safety Report 8171690-5 (Version None)
Quarter: 2012Q1

REPORT INFORMATION
  Report Type: 
  Country: None (occurrence: None)
  Receive Date: 20120228
  Receipt Date: 20120221
  Transmission Date: 20120608
  Serious: Yes (Death, Hospitalization)
  Sender: FDA-Public Use
  Company Number: DE-CELGENEUS-062-50794-11123507

PATIENT
  Age: 84 Year
  Sex: Male

DRUGS (3)
  1. PREDNISONE TAB [Concomitant]
     Dosage: 25 MILLIGRAM
     Route: 048
  2. VIDAZA [Suspect]
     Dosage: 75 MILLIGRAM/SQ. METER
     Route: 058
     Dates: start: 20111010, end: 20111018
  3. BISOPROLOL FUMARATE [Concomitant]
     Indication: HYPERTENSION
     Dosage: 2.5 MILLIGRAM
     Route: 048

REACTIONS (1)
  - CEREBRAL HAEMORRHAGE [None]
